FAERS Safety Report 16239987 (Version 6)
Quarter: 2019Q2

REPORT INFORMATION
  Report Type: Spontaneous
  Country: FR (occurrence: FR)
  Receive Date: 20190425
  Receipt Date: 20190527
  Transmission Date: 20190711
  Serious: Yes (Hospitalization, Other)
  Sender: FDA-Public Use
  Company Number: FR-PFIZER INC-2019172958

PATIENT
  Age: 63 Year
  Sex: Female

DRUGS (12)
  1. MACROGOL [Concomitant]
     Active Substance: POLYETHYLENE GLYCOLS
     Indication: PROPHYLAXIS
     Dosage: UNK
     Route: 048
     Dates: start: 20190205
  2. GABAPENTIN. [Suspect]
     Active Substance: GABAPENTIN
     Indication: TOXIC SKIN ERUPTION
     Dosage: 300 MG, 1X/DAY
     Route: 048
     Dates: start: 20190205
  3. PARACETAMOL [Concomitant]
     Active Substance: ACETAMINOPHEN
     Indication: PROPHYLAXIS
     Dosage: 1 G, UNK
     Route: 048
     Dates: start: 20190205, end: 20190208
  4. RAMIPRIL. [Concomitant]
     Active Substance: RAMIPRIL
     Indication: HYPERTENSION
     Dosage: UNK, 1X/DAY
     Route: 048
     Dates: start: 201805
  5. LANSOPRAZOLE. [Suspect]
     Active Substance: LANSOPRAZOLE
     Indication: PROPHYLAXIS
     Dosage: 60 MG, UNK
     Route: 065
  6. LANSOPRAZOLE. [Suspect]
     Active Substance: LANSOPRAZOLE
     Dosage: 60 MILLIGRAM
     Route: 065
  7. PREDNISONE. [Concomitant]
     Active Substance: PREDNISONE
     Indication: PNEUMONIA
     Dosage: 80 MG, 1X/DAY
     Route: 048
     Dates: start: 20190206, end: 20190208
  8. LANSOPRAZOLE. [Suspect]
     Active Substance: LANSOPRAZOLE
     Dosage: 15 MILLIGRAM, QD
     Route: 048
     Dates: start: 20190205, end: 20190208
  9. BACTRIM [Suspect]
     Active Substance: SULFAMETHOXAZOLE\TRIMETHOPRIM
     Dosage: 1 DF, 3X/DAY (Q8HR)
     Route: 042
     Dates: start: 20190131, end: 20190203
  10. BACTRIM [Suspect]
     Active Substance: SULFAMETHOXAZOLE\TRIMETHOPRIM
     Dosage: UNK, 3X/DAY
     Route: 042
     Dates: start: 20190204, end: 20190208
  11. NEURONTIN [Concomitant]
     Active Substance: GABAPENTIN
     Indication: TOXIC SKIN ERUPTION
     Dosage: 300 MG, 1X/DAY
     Route: 048
     Dates: start: 20190205
  12. EFFEXOR [Concomitant]
     Active Substance: VENLAFAXINE HYDROCHLORIDE
     Indication: DEPRESSION
     Dosage: 38 MG, 1X/DAY
     Route: 048
     Dates: start: 201707

REACTIONS (2)
  - Toxic skin eruption [Recovered/Resolved]
  - Urinary tract infection [Recovered/Resolved]

NARRATIVE: CASE EVENT DATE: 20190211
